FAERS Safety Report 25254726 (Version 4)
Quarter: 2025Q3

REPORT INFORMATION
  Report Type: Report from Study
  Country: US (occurrence: US)
  Receive Date: 20250430
  Receipt Date: 20250821
  Transmission Date: 20251020
  Serious: No
  Sender: SUNOVION
  Company Number: US-SMPA-2025SPA004193AA

PATIENT
  Age: 59 Year
  Sex: Male

DRUGS (3)
  1. ORGOVYX [Suspect]
     Active Substance: RELUGOLIX
     Indication: Prostate cancer
     Route: 048
  2. ORGOVYX [Suspect]
     Active Substance: RELUGOLIX
     Dosage: 120 MG, QD
     Route: 048
     Dates: start: 20250314
  3. NUBEQA [Suspect]
     Active Substance: DAROLUTAMIDE
     Indication: Product used for unknown indication

REACTIONS (7)
  - Groin pain [Unknown]
  - Memory impairment [Unknown]
  - Testicular atrophy [Unknown]
  - Pain [Not Recovered/Not Resolved]
  - Weight increased [Unknown]
  - Fatigue [Unknown]
  - Musculoskeletal stiffness [Unknown]
